FAERS Safety Report 11521739 (Version 1)
Quarter: 2015Q3

REPORT INFORMATION
  Report Type: Spontaneous
  Country: US (occurrence: US)
  Receive Date: 20150918
  Receipt Date: 20150918
  Transmission Date: 20151125
  Serious: No
  Sender: FDA-Public Use
  Company Number: US-ROCHE-716288

PATIENT
  Age: 44 Year
  Sex: Male

DRUGS (5)
  1. VIREAD [Concomitant]
     Active Substance: TENOFOVIR DISOPROXIL FUMARATE
     Route: 065
  2. PEGASYS [Suspect]
     Active Substance: PEGINTERFERON ALFA-2A
     Indication: HEPATITIS
     Dosage: FORM: PRE-FILLED SYRINGE. WEEK-7 OF THERAPY
     Route: 065
  3. RIBASPHERE [Suspect]
     Active Substance: RIBAVIRIN
     Indication: HEPATITIS
     Dosage: DOSE TAKEN IN DIVIDED DOSES. WEEK 7 OF THERAPY
     Route: 065
  4. TEGRETOL [Concomitant]
     Active Substance: CARBAMAZEPINE
     Route: 065
  5. VITAMIN [Concomitant]
     Active Substance: VITAMINS
     Route: 065

REACTIONS (6)
  - Chest pain [Recovered/Resolved]
  - Dizziness [Unknown]
  - Pain [Not Recovered/Not Resolved]
  - Feeling abnormal [Not Recovered/Not Resolved]
  - Pain [Recovered/Resolved]
  - Nausea [Unknown]

NARRATIVE: CASE EVENT DATE: 20100715
